FAERS Safety Report 6456816-3 (Version None)
Quarter: 2009Q4

REPORT INFORMATION
  Report Type: 
  Country: None (occurrence: None)
  Receive Date: 20091125
  Receipt Date: 20091112
  Transmission Date: 20100525
  Serious: Yes (Hospitalization)
  Sender: FDA-Public Use
  Company Number: FR-ROCHE-666980

PATIENT
  Sex: Female
  Weight: 54 kg

DRUGS (8)
  1. METHOXY POLYETHYLENE GLYCOL-EPOETIN BETA [Suspect]
     Dosage: DOSE: 100 UNITS
     Route: 058
     Dates: start: 20090615, end: 20091022
  2. IMUREL [Suspect]
     Dosage: DOSE: 2, TAKEN DAILY
     Route: 048
  3. CORTANCYL [Concomitant]
     Route: 048
  4. SECTRAL [Concomitant]
     Dosage: DRUG: SECTRAL 200
     Route: 048
  5. HYPERIUM [Concomitant]
     Dosage: DOSE: 1, TAKEN DAILY
     Route: 048
  6. OROCAL D3 [Concomitant]
     Dosage: DOSE: 2, TAKEN DAILY
     Route: 048
  7. TARDYFERON [Concomitant]
     Dosage: DOSE: 2, TAKEN DAILY
     Route: 048
  8. TAHOR [Concomitant]
     Dosage: DRUG: TAHOR 10, DOSE:1, TAKEN DAILY
     Route: 048

REACTIONS (1)
  - APLASIA PURE RED CELL [None]
